FAERS Safety Report 8784644 (Version 2)
Quarter: 2012Q4

REPORT INFORMATION
  Report Type: Spontaneous
  Country: DE (occurrence: None)
  Receive Date: 20120831
  Receipt Date: 20120917
  Transmission Date: 20130627
  Serious: Yes (Hospitalization)
  Sender: FDA-Public Use
  Company Number: ACO_31534_2012

PATIENT
  Age: 31 Year
  Sex: Female

DRUGS (2)
  1. FAMPRIDINE-SR (FAMPRIDINE) TABLET [Suspect]
     Indication: MULTIPLE SCLEROSIS
     Route: 048
     Dates: start: 20120524, end: 20120814
  2. GILENYA (FINGOLIMOD HYDROCHLORIDE) [Concomitant]

REACTIONS (1)
  - Grand mal convulsion [None]
